FAERS Safety Report 10024934 (Version 1)
Quarter: 2014Q1

REPORT INFORMATION
  Report Type: Spontaneous
  Country: FR (occurrence: FR)
  Receive Date: 20140320
  Receipt Date: 20140320
  Transmission Date: 20141002
  Serious: Yes (Hospitalization)
  Sender: FDA-Public Use
  Company Number: FR-GE HEALTHCARE MEDICAL DIAGNOSTICS-OMPQ-PR-1403S-0273

PATIENT
  Age: 82 Year
  Sex: Male

DRUGS (10)
  1. OMNIPAQUE [Suspect]
     Indication: ADENOCARCINOMA
     Dosage: DOSE NOT REPORTED
     Route: 065
     Dates: start: 20140108, end: 20140108
  2. OMNIPAQUE [Suspect]
     Indication: DIAGNOSTIC PROCEDURE
  3. CORDARONE [Concomitant]
  4. COUMADINE [Concomitant]
  5. INEXIUM [Concomitant]
  6. KARDEGIC [Concomitant]
  7. ALDACTONE [Concomitant]
  8. CARDENSIEL [Concomitant]
  9. OMEXEL [Concomitant]
  10. AVODART [Concomitant]

REACTIONS (2)
  - Renal tubular necrosis [Recovered/Resolved]
  - Renal failure acute [Recovered/Resolved]
